FAERS Safety Report 13876264 (Version 1)
Quarter: 2017Q3

REPORT INFORMATION
  Report Type: Spontaneous
  Country: US (occurrence: None)
  Receive Date: 20170814
  Receipt Date: 20170814
  Transmission Date: 20171127
  Serious: No
  Sender: FDA-Public Use
  Company Number: None

PATIENT
  Age: 60 Year
  Sex: Male

DRUGS (9)
  1. NEXIUM [Concomitant]
     Active Substance: ESOMEPRAZOLE MAGNESIUM
  2. FENOFIBRATE. [Concomitant]
     Active Substance: FENOFIBRATE
  3. PERCOCET [Concomitant]
     Active Substance: ACETAMINOPHEN\OXYCODONE HYDROCHLORIDE
  4. ATENOLOL. [Concomitant]
     Active Substance: ATENOLOL
  5. METOPROLOL. [Concomitant]
     Active Substance: METOPROLOL
  6. MYCOPHENOLATE 500 MG [Suspect]
     Active Substance: MYCOPHENOLATE MOFETIL
     Indication: PRODUCT USED FOR UNKNOWN INDICATION
     Dosage: DOSE - 1,500 MG/1,000 MG?FREQUENCY - QAM/QPM
     Route: 048
     Dates: start: 20160105
  7. ATORVASTATIN [Concomitant]
     Active Substance: ATORVASTATIN
  8. SYMBICORT [Concomitant]
     Active Substance: BUDESONIDE\FORMOTEROL FUMARATE DIHYDRATE
  9. ASA [Concomitant]
     Active Substance: ASPIRIN

REACTIONS (2)
  - Dizziness [None]
  - Myocardial infarction [None]

NARRATIVE: CASE EVENT DATE: 20170729
